FAERS Safety Report 10154600 (Version 1)
Quarter: 2014Q2

REPORT INFORMATION
  Report Type: Spontaneous
  Country: US (occurrence: US)
  Receive Date: 20140506
  Receipt Date: 20140506
  Transmission Date: 20141212
  Serious: No
  Sender: FDA-Public Use
  Company Number: US-PFIZER INC-2014120995

PATIENT
  Age: 62 Year
  Sex: Male

DRUGS (1)
  1. INLYTA [Suspect]
     Dosage: 3 MG, 2X/DAY

REACTIONS (4)
  - Hypertension [Unknown]
  - Hypothyroidism [Unknown]
  - Fatigue [Unknown]
  - Diarrhoea [Unknown]
